FAERS Safety Report 5100583-2 (Version None)
Quarter: 2006Q3

REPORT INFORMATION
  Report Type: 
  Country: None (occurrence: None)
  Receive Date: 20060907
  Receipt Date: 20060907
  Transmission Date: 20061208
  Serious: Yes (Other)
  Sender: FDA-Public Use
  Company Number: None

PATIENT
  Sex: Female
  Weight: 49.8957 kg

DRUGS (1)
  1. IMURAN [Suspect]
     Indication: LUNG TRANSPLANT
     Dosage: 100 MG QD PO
     Route: 048
     Dates: start: 20060301

REACTIONS (4)
  - ADVERSE EVENT [None]
  - IMMUNOSUPPRESSANT DRUG LEVEL [None]
  - LABORATORY TEST ABNORMAL [None]
  - THERAPEUTIC PRODUCT CONTAMINATION [None]
